FAERS Safety Report 20278441 (Version 1)
Quarter: 2022Q1

REPORT INFORMATION
  Report Type: Report from Study
  Country: CO (occurrence: CO)
  Receive Date: 20220103
  Receipt Date: 20220103
  Transmission Date: 20220424
  Serious: Yes (Hospitalization)
  Sender: FDA-Public Use
  Company Number: CO-AstraZeneca-2021A857279

PATIENT
  Age: 4 Month
  Sex: Male
  Weight: 2.1 kg

DRUGS (1)
  1. SYNAGIS [Suspect]
     Active Substance: PALIVIZUMAB
     Indication: Respiratory disorder
     Route: 030
     Dates: start: 20210929

REACTIONS (1)
  - Myalgia intercostal [Not Recovered/Not Resolved]

NARRATIVE: CASE EVENT DATE: 20211201
